FAERS Safety Report 17349174 (Version 1)
Quarter: 2020Q1

REPORT INFORMATION
  Report Type: Report from Study
  Country: KR (occurrence: KR)
  Receive Date: 20200129
  Receipt Date: 20200129
  Transmission Date: 20200409
  Serious: Yes (Hospitalization, Other)
  Sender: FDA-Public Use
  Company Number: KR-AMGEN-KORNI2020013355

PATIENT
  Age: 58 Year
  Sex: Female

DRUGS (5)
  1. CYCLOPHOSPHAMIDE. [Concomitant]
     Active Substance: CYCLOPHOSPHAMIDE
     Dosage: 822 MILLIGRAM FREQUENCY 1
     Dates: start: 20200113, end: 20200113
  2. PEGFILGRASTIM [Suspect]
     Active Substance: PEGFILGRASTIM
     Indication: BREAST CANCER
     Dosage: 6 MILLIGRAM X1
     Route: 058
     Dates: start: 20200114, end: 20200114
  3. CYCLOPHOSPHAMIDE. [Concomitant]
     Active Substance: CYCLOPHOSPHAMIDE
     Indication: BREAST CANCER
     Dosage: 822 MILLIGRAM FREQUENCY 1
     Dates: start: 20191223, end: 20191223
  4. DOXORUBICIN [Concomitant]
     Active Substance: DOXORUBICIN
     Indication: BREAST CANCER
     Dosage: 82.2 MILLIGRAM FREQUENCY 1
     Dates: start: 20191223, end: 20191223
  5. DOXORUBICIN [Concomitant]
     Active Substance: DOXORUBICIN
     Dosage: 82.2 MILLIGRAM FREQUENCY 1
     Dates: start: 20200113, end: 20200113

REACTIONS (1)
  - Febrile neutropenia [Recovered/Resolved]

NARRATIVE: CASE EVENT DATE: 20200120
